FAERS Safety Report 5786698-4 (Version None)
Quarter: 2008Q2

REPORT INFORMATION
  Report Type: 
  Country: None (occurrence: None)
  Receive Date: 20080618
  Receipt Date: 20080605
  Transmission Date: 20081010
  Serious: Yes (Death)
  Sender: FDA-Public Use
  Company Number: E3810-01924-SPO-CH

PATIENT
  Age: 89 Year
  Sex: Male

DRUGS (2)
  1. RABEPRAZOLE SODIUM [Suspect]
     Dosage: 20 MG, ORAL
     Route: 048
     Dates: start: 20080404
  2. PANTOPRAZOLE SODIUM [Concomitant]

REACTIONS (1)
  - HYPONATRAEMIA [None]
